FAERS Safety Report 7521478-0 (Version None)
Quarter: 2011Q2

REPORT INFORMATION
  Report Type: 
  Country: None (occurrence: None)
  Receive Date: 20110603
  Receipt Date: 20110103
  Transmission Date: 20111010
  Serious: Yes (Hospitalization)
  Sender: FDA-Public Use
  Company Number: US-BAYER-201023168NA

PATIENT
  Age: 19 Year
  Sex: Female
  Weight: 57.273 kg

DRUGS (7)
  1. YASMIN [Suspect]
     Indication: PREMENSTRUAL SYNDROME
  2. NAPROSYN [Concomitant]
     Route: 048
  3. YAZ [Suspect]
     Indication: PREMENSTRUAL SYNDROME
  4. YASMIN [Suspect]
     Indication: DYSMENORRHOEA
     Route: 048
     Dates: start: 20030101
  5. DARVOCET-N 50 [Concomitant]
     Route: 048
  6. ACIPHEX [Concomitant]
     Dosage: DAILY
     Route: 048
  7. YAZ [Suspect]
     Indication: DYSMENORRHOEA
     Route: 048
     Dates: start: 20060401, end: 20070501

REACTIONS (4)
  - DEEP VEIN THROMBOSIS [None]
  - OEDEMA PERIPHERAL [None]
  - MENTAL DISORDER [None]
  - ABASIA [None]
